FAERS Safety Report 7942628-8 (Version None)
Quarter: 2011Q4

REPORT INFORMATION
  Report Type: 
  Country: None (occurrence: None)
  Receive Date: 20111128
  Receipt Date: 20111117
  Transmission Date: 20120403
  Serious: Yes (Hospitalization, Other)
  Sender: FDA-Public Use
  Company Number: US-CELGENEUS-163-21880-11091038

PATIENT
  Sex: Male
  Weight: 79.45 kg

DRUGS (5)
  1. ASPIRIN [Concomitant]
     Dosage: 325 MILLIGRAM
     Route: 048
  2. DEXAMETHASONE [Concomitant]
     Indication: MULTIPLE MYELOMA
     Dosage: 40 MILLIGRAM
     Route: 065
  3. REVLIMID [Suspect]
     Dosage: 15 MILLIGRAM
     Route: 048
     Dates: start: 20110906
  4. ZOMETA [Suspect]
     Route: 050
  5. REVLIMID [Suspect]
     Indication: MULTIPLE MYELOMA
     Dosage: 25 MILLIGRAM
     Route: 048
     Dates: start: 20110705, end: 20110828

REACTIONS (3)
  - HYPOTHYROIDISM [None]
  - BRADYCARDIA [None]
  - BLOOD CALCIUM DECREASED [None]
